FAERS Safety Report 8492555-5 (Version None)
Quarter: 2012Q3

REPORT INFORMATION
  Report Type: 
  Country: None (occurrence: None)
  Receive Date: 20120706
  Receipt Date: 20120628
  Transmission Date: 20120928
  Serious: Yes (Death)
  Sender: FDA-Public Use
  Company Number: JP-ROCHE-1082967

PATIENT
  Sex: Female

DRUGS (28)
  1. ACTEMRA [Suspect]
     Indication: CASTLEMAN'S DISEASE
     Route: 041
     Dates: start: 20110304, end: 20110401
  2. ALDACTONE [Concomitant]
     Indication: HYPERTENSION
     Dosage: DOSAGE IS UNCERTAIN.
     Route: 048
     Dates: start: 20111025, end: 20120117
  3. PREDNISOLONE [Suspect]
     Route: 048
     Dates: start: 20110525, end: 20110719
  4. DIOVAN [Concomitant]
     Indication: HYPERTENSION
     Route: 048
  5. FUROSEMIDE [Concomitant]
     Route: 048
     Dates: start: 20120104, end: 20120213
  6. FUROSEMIDE [Concomitant]
     Route: 048
     Dates: start: 20120214, end: 20120227
  7. DIOVAN [Concomitant]
     Route: 048
     Dates: start: 20110705
  8. SIMVASTATIN [Concomitant]
     Indication: HYPERLIPIDAEMIA
     Route: 048
  9. FUROSEMIDE [Concomitant]
     Indication: HYPERTENSION
     Route: 048
     Dates: start: 20110607, end: 20110801
  10. EXFORGE [Concomitant]
     Indication: HYPERTENSION
     Route: 048
     Dates: start: 20110705
  11. TAPAZOL [Concomitant]
     Indication: PROPHYLAXIS
     Route: 048
  12. BETAMETHASONE [Concomitant]
     Indication: CASTLEMAN'S DISEASE
     Route: 048
     Dates: start: 20120118, end: 20120131
  13. GLUFAST [Concomitant]
     Indication: PROPHYLAXIS
     Route: 048
  14. ACTEMRA [Suspect]
     Route: 041
     Dates: start: 20110426
  15. PREDNISOLONE [Suspect]
     Indication: CASTLEMAN'S DISEASE
     Route: 048
     Dates: end: 20110719
  16. ALENDRONATE SODIUM [Concomitant]
     Indication: OSTEOPOROSIS
     Route: 048
  17. BETAMETHASONE [Concomitant]
     Route: 048
     Dates: start: 20120215, end: 20120228
  18. BETAMETHASONE [Concomitant]
     Route: 048
     Dates: start: 20120229
  19. FUNGIZONE [Concomitant]
     Indication: CANDIDIASIS
     Route: 048
  20. MAGLAX [Concomitant]
     Indication: PROPHYLAXIS
     Route: 048
  21. NERIPROCT [Concomitant]
     Indication: HAEMORRHOIDS
     Dosage: ONE-TWICE/DAY
     Route: 054
  22. ISONIAZID [Concomitant]
     Indication: PROPHYLAXIS
     Route: 048
  23. FUROSEMIDE [Concomitant]
     Route: 048
     Dates: start: 20110802, end: 20120103
  24. FUROSEMIDE [Concomitant]
     Route: 048
     Dates: start: 20120228
  25. BETAMETHASONE [Concomitant]
     Route: 048
     Dates: start: 20120201, end: 20120214
  26. DILTIAZEM HCL [Concomitant]
     Indication: HYPERTENSION
     Route: 048
  27. PREDNISOLONE [Suspect]
     Route: 048
     Dates: start: 20110720
  28. LASIX [Concomitant]
     Indication: HYPERTENSION
     Route: 048
     Dates: end: 20110606

REACTIONS (4)
  - HEPATIC FUNCTION ABNORMAL [None]
  - DEATH [None]
  - OEDEMA [None]
  - EOSINOPHIL COUNT INCREASED [None]
